FAERS Safety Report 9360868 (Version 1)
Quarter: 2013Q2

REPORT INFORMATION
  Report Type: Spontaneous
  Country: US (occurrence: US)
  Receive Date: 20130621
  Receipt Date: 20130621
  Transmission Date: 20140414
  Serious: No
  Sender: FDA-Public Use
  Company Number: US-TEVA-414136USA

PATIENT
  Sex: Female
  Weight: 62.2 kg

DRUGS (4)
  1. QVAR [Suspect]
     Route: 055
  2. HYPERTENSION MEDICATIONS UNSPECIFIED [Concomitant]
     Indication: HYPERTENSION
  3. CHOLESTEROL MEDICATION UNSPECIFIED [Concomitant]
     Indication: BLOOD CHOLESTEROL ABNORMAL
  4. VITAMINS NOS [Concomitant]
     Indication: SUPPLEMENTATION THERAPY

REACTIONS (1)
  - Contusion [Unknown]
